FAERS Safety Report 7968564-9 (Version None)
Quarter: 2011Q4

REPORT INFORMATION
  Report Type: 
  Country: None (occurrence: None)
  Receive Date: 20111207
  Receipt Date: 20111201
  Transmission Date: 20120403
  Serious: Yes (Disabling, Other)
  Sender: FDA-Public Use
  Company Number: C11-008

PATIENT
  Age: 72 Year
  Sex: Male

DRUGS (19)
  1. ALENDRONATE SODIUM [Concomitant]
  2. ISPAGHULA HUSK [Concomitant]
  3. DOXAZOSIN MESYLATE [Concomitant]
  4. PRAVASTATIN [Concomitant]
  5. AMITRIPTYLINE HCL [Concomitant]
  6. PREDNISOLONE [Concomitant]
  7. RANITIDINE [Concomitant]
  8. ALLOPURINOL [Concomitant]
  9. DOCUSATE [Concomitant]
  10. DUTASERIDE [Concomitant]
  11. RIFAMPICIN [Suspect]
     Indication: DEVICE RELATED INFECTION
     Dosage: 300 MG/BID
  12. ASPIRIN [Concomitant]
  13. ALBUTEROL SULFATE AUTOHALER [Concomitant]
  14. CALCIUM [Concomitant]
  15. ENOXAPARIN [Concomitant]
  16. CYCLOSPORINE [Concomitant]
  17. NYSTATIN [Concomitant]
  18. TAMSULOSIN HCL [Concomitant]
  19. BUDESONIDE/FORMOTEROL [Concomitant]

REACTIONS (5)
  - INTERVERTEBRAL DISC PROTRUSION [None]
  - PERIPHERAL SENSORIMOTOR NEUROPATHY [None]
  - SPINAL COLUMN STENOSIS [None]
  - MYALGIA [None]
  - SERONEGATIVE ARTHRITIS [None]
